FAERS Safety Report 17014601 (Version 3)
Quarter: 2019Q4

REPORT INFORMATION
  Report Type: Spontaneous
  Country: CO (occurrence: CO)
  Receive Date: 20191111
  Receipt Date: 20191129
  Transmission Date: 20200122
  Serious: No
  Sender: FDA-Public Use
  Company Number: CO-BEH-2019109301

PATIENT
  Age: 58 Year
  Sex: Female
  Weight: 60 kg

DRUGS (4)
  1. HAEMATE P [Suspect]
     Active Substance: ANTIHEMOPHILIC FACTOR HUMAN
     Indication: VON WILLEBRAND^S DISEASE
     Dosage: 1200 INTERNATIONAL UNIT
     Route: 042
     Dates: start: 20191002
  2. HAEMATE P [Suspect]
     Active Substance: ANTIHEMOPHILIC FACTOR HUMAN
     Indication: POST PROCEDURAL HAEMORRHAGE
     Dosage: UNK
     Route: 042
     Dates: start: 20191004, end: 20191005
  3. HAEMATE P [Suspect]
     Active Substance: ANTIHEMOPHILIC FACTOR HUMAN
     Indication: VON WILLEBRAND^S DISEASE
     Dosage: 1200 INTERNATIONAL UNIT
     Route: 042
     Dates: start: 20191002
  4. HAEMATE P [Suspect]
     Active Substance: ANTIHEMOPHILIC FACTOR HUMAN
     Indication: POST PROCEDURAL HAEMORRHAGE
     Dosage: UNK
     Route: 042
     Dates: start: 20191004, end: 20191005

REACTIONS (7)
  - Pruritus [Recovered/Resolved]
  - Dysgeusia [Recovered/Resolved]
  - Dysgeusia [Unknown]
  - Rash [Unknown]
  - Chest discomfort [Unknown]
  - Pruritus [Unknown]
  - Chest discomfort [Recovered/Resolved]

NARRATIVE: CASE EVENT DATE: 20191002
